FAERS Safety Report 10730492 (Version 1)
Quarter: 2015Q1

REPORT INFORMATION
  Report Type: Spontaneous
  Country: US (occurrence: US)
  Receive Date: 20150122
  Receipt Date: 20150122
  Transmission Date: 20150721
  Serious: Yes (Hospitalization, Other)
  Sender: FDA-Public Use
  Company Number: US-TARO-2014TAR00637

PATIENT
  Age: 77 Year
  Sex: Male
  Weight: 80.73 kg

DRUGS (2)
  1. POLYSPORIN/NEOSPORIN [Suspect]
     Active Substance: BACITRACIN ZINC\NEOMYCIN SULFATE\POLYMYXIN B SULFATE
  2. FLUOROURACIL. [Suspect]
     Active Substance: FLUOROURACIL
     Indication: SKIN DEPIGMENTATION
     Dosage: UNK UNK, 2X/DAY
     Route: 061
     Dates: start: 201411, end: 201411

REACTIONS (9)
  - Dermatitis contact [Unknown]
  - Drug ineffective [None]
  - Skin exfoliation [Not Recovered/Not Resolved]
  - Erythema [Not Recovered/Not Resolved]
  - Skin burning sensation [Not Recovered/Not Resolved]
  - Application site pain [Not Recovered/Not Resolved]
  - Eczema [Unknown]
  - Rash [Not Recovered/Not Resolved]
  - Dermatitis exfoliative [Unknown]

NARRATIVE: CASE EVENT DATE: 201411
